FAERS Safety Report 17863992 (Version 1)
Quarter: 2020Q2

REPORT INFORMATION
  Report Type: Spontaneous
  Country: US (occurrence: US)
  Receive Date: 20200605
  Receipt Date: 20200605
  Transmission Date: 20200714
  Serious: No
  Sender: FDA-Public Use
  Company Number: US-PFIZER INC-2020219808

PATIENT
  Age: 65 Year
  Sex: Female
  Weight: 54.43 kg

DRUGS (2)
  1. CALCIUM + VITAMIN D [CALCIUM CARBONATE;COLECALCIFEROL] [Concomitant]
     Active Substance: CALCIUM CARBONATE\CHOLECALCIFEROL
     Dosage: UNK
  2. PREMARIN [Suspect]
     Active Substance: ESTROGENS, CONJUGATED
     Indication: OESTROGEN DEFICIENCY
     Dosage: UNK, 2X/WEEK (INSERTS A HALF A CC INTO VAGINA TWICE WEEKLY)
     Route: 067
     Dates: start: 2018

REACTIONS (5)
  - Vulvovaginal burning sensation [Unknown]
  - Menopause [Unknown]
  - Off label use [Unknown]
  - Vulvovaginal dryness [Unknown]
  - Product use in unapproved indication [Unknown]
